FAERS Safety Report 25198734 (Version 5)
Quarter: 2025Q3

REPORT INFORMATION
  Report Type: Report from Study
  Country: US (occurrence: US)
  Receive Date: 20250415
  Receipt Date: 20250829
  Transmission Date: 20251020
  Serious: Yes (Other)
  Sender: ACADIA PHARMACEUTICALS
  Company Number: US-ACADIA PHARMACEUTICALS INC.-ACA-2025-PIM-004229

PATIENT
  Sex: Female

DRUGS (16)
  1. NUPLAZID [Suspect]
     Active Substance: PIMAVANSERIN TARTRATE
     Indication: Parkinson^s disease
     Dosage: 34 MILLIGRAM, QD
     Route: 048
     Dates: start: 20231208
  2. BIOTIN [Concomitant]
     Active Substance: BIOTIN
  3. CALCIUM\MAGNESIUM\VITAMIN D\ZINC [Concomitant]
     Active Substance: CALCIUM\MAGNESIUM\VITAMIN D\ZINC
  4. FISH OIL [Concomitant]
     Active Substance: FISH OIL
  5. GARLIC OIL [Concomitant]
     Active Substance: GARLIC OIL
  6. ASPIRIN [Concomitant]
     Active Substance: ASPIRIN
  7. VITAMINS NOS [Concomitant]
     Active Substance: VITAMINS
  8. BIFIDOBACTERIUM ANIMALIS LACTIS [Concomitant]
     Active Substance: BIFIDOBACTERIUM ANIMALIS LACTIS
     Dosage: UNK, QD
  9. STOOL SOFTENER (DOCUSATE) [Concomitant]
     Active Substance: DOCUSATE
  10. TYLENOL [Concomitant]
     Active Substance: ACETAMINOPHEN
  11. VITAMIN C [Concomitant]
     Active Substance: ASCORBIC ACID
  12. VITAMIN D3 [Concomitant]
     Active Substance: CHOLECALCIFEROL
  13. RYTARY [Concomitant]
     Active Substance: CARBIDOPA\LEVODOPA
  14. RYTARY [Concomitant]
     Active Substance: CARBIDOPA\LEVODOPA
  15. FLUDROCORTISONE [Concomitant]
     Active Substance: FLUDROCORTISONE
     Dosage: 0.1 MILLIGRAM, BID
  16. MIDODRINE [Concomitant]
     Active Substance: MIDODRINE
     Dosage: UNK, BID

REACTIONS (6)
  - Hallucination [Unknown]
  - Condition aggravated [Unknown]
  - Confusional state [Unknown]
  - Constipation [Unknown]
  - Gait disturbance [Unknown]
  - Product dose omission issue [Unknown]
